FAERS Safety Report 19078130 (Version 1)
Quarter: 2021Q1

REPORT INFORMATION
  Report Type: Report from Study
  Country: RU (occurrence: RU)
  Receive Date: 20210331
  Receipt Date: 20210331
  Transmission Date: 20210420
  Serious: Yes (Other)
  Sender: FDA-Public Use
  Company Number: RU-AMERICAN REGENT INC-2021000760

PATIENT
  Age: 51 Year
  Sex: Female

DRUGS (4)
  1. OMEPRAZOLE. [Concomitant]
     Active Substance: OMEPRAZOLE
     Indication: PRODUCT USED FOR UNKNOWN INDICATION
     Dosage: 20 MG,1 IN 1 D
     Route: 065
  2. VENOFER [Suspect]
     Active Substance: IRON SUCROSE
     Indication: ANAEMIA
     Dosage: UNK
     Route: 042
     Dates: start: 2019
  3. MALTOFER                           /00023548/ [Suspect]
     Active Substance: IRON POLYMALTOSE
     Indication: ANAEMIA
     Dosage: 200 MG (100 MG, 2 IN 1 D)
     Route: 065
     Dates: start: 2018
  4. HYDROXYCARBAMIDE [Concomitant]
     Active Substance: HYDROXYUREA
     Indication: PRODUCT USED FOR UNKNOWN INDICATION
     Dosage: 500 TO 1000
     Route: 065
     Dates: end: 201907

REACTIONS (11)
  - Primary myelofibrosis [Unknown]
  - Portal vein thrombosis [Unknown]
  - Varices oesophageal [Unknown]
  - Blood pressure decreased [Recovered/Resolved]
  - Portal hypertension [Unknown]
  - Oesophageal varices haemorrhage [Recovered/Resolved]
  - Gastritis [Unknown]
  - Hepatic steatosis [Unknown]
  - Hyperhidrosis [Unknown]
  - Haematemesis [Unknown]
  - Cholelithiasis [Unknown]

NARRATIVE: CASE EVENT DATE: 2018
